FAERS Safety Report 12791754 (Version 3)
Quarter: 2016Q4

REPORT INFORMATION
  Report Type: Report from Study
  Country: CO (occurrence: CO)
  Receive Date: 20160929
  Receipt Date: 20161026
  Transmission Date: 20170207
  Serious: Yes (Hospitalization)
  Sender: FDA-Public Use
  Company Number: PHHY2016CO132586

PATIENT
  Sex: Male
  Weight: 90 kg

DRUGS (5)
  1. ADRENALINE [Concomitant]
     Active Substance: EPINEPHRINE
     Indication: PRODUCT USED FOR UNKNOWN INDICATION
     Dosage: UNK
     Route: 065
  2. POTASSIUM [Concomitant]
     Active Substance: POTASSIUM
     Indication: PRODUCT USED FOR UNKNOWN INDICATION
     Dosage: UNK
     Route: 065
  3. OMEPRAZOLE. [Concomitant]
     Active Substance: OMEPRAZOLE
     Indication: PRODUCT USED FOR UNKNOWN INDICATION
     Dosage: UNK UNK, QD
     Route: 048
  4. TASIGNA [Suspect]
     Active Substance: NILOTINIB
     Indication: CHRONIC MYELOID LEUKAEMIA
     Dosage: 600 MG, QD (150 MG, 2 EVERY 12 HOURS)
     Route: 048
     Dates: start: 20130522
  5. DOLEX                              /00070401/ [Concomitant]
     Indication: PAIN
     Route: 065

REACTIONS (9)
  - Fall [Unknown]
  - Coma [Unknown]
  - Road traffic accident [Unknown]
  - Cerebral haemorrhage [Recovering/Resolving]
  - Rash [Unknown]
  - Memory impairment [Recovering/Resolving]
  - Inappropriate schedule of drug administration [Unknown]
  - Head injury [Unknown]
  - Seizure [Unknown]
